FAERS Safety Report 16300333 (Version 1)
Quarter: 2019Q2

REPORT INFORMATION
  Report Type: Spontaneous
  Country: DK (occurrence: DK)
  Receive Date: 20190510
  Receipt Date: 20190510
  Transmission Date: 20190711
  Serious: Yes (Other)
  Sender: FDA-Public Use
  Company Number: DK-SHIRE-DK201915020

PATIENT

DRUGS (1)
  1. HYQVIA [Suspect]
     Active Substance: HUMAN IMMUNOGLOBULIN G\HYALURONIDASE RECOMBINANT HUMAN
     Indication: MULTIFOCAL MOTOR NEUROPATHY
     Route: 058

REACTIONS (3)
  - Headache [Unknown]
  - Infection [Unknown]
  - Nausea [Unknown]
